FAERS Safety Report 4594184-2 (Version None)
Quarter: 2005Q1

REPORT INFORMATION
  Report Type: 
  Country: None (occurrence: None)
  Receive Date: 20050301
  Receipt Date: 20050217
  Transmission Date: 20050727
  Serious: Yes (Hospitalization)
  Sender: FDA-Public Use
  Company Number: FR-GLAXOSMITHKLINE-B0373087A

PATIENT
  Age: 70 Year
  Sex: Female

DRUGS (3)
  1. LAMOTRIGINE [Suspect]
     Indication: EPILEPSY
     Route: 048
     Dates: start: 20050201, end: 20050201
  2. ATHYMIL [Suspect]
     Indication: ILL-DEFINED DISORDER
     Route: 048
     Dates: start: 20050121, end: 20050201
  3. TRIATEC [Concomitant]
     Route: 048

REACTIONS (5)
  - AGRANULOCYTOSIS [None]
  - CHEILITIS [None]
  - INFECTION [None]
  - LEUKOPENIA [None]
  - PYREXIA [None]
